FAERS Safety Report 11760674 (Version 1)
Quarter: 2015Q4

REPORT INFORMATION
  Report Type: Other
  Country: GB (occurrence: GB)
  Receive Date: 20151120
  Receipt Date: 20151120
  Transmission Date: 20160304
  Serious: Yes (Disabling)
  Sender: FDA-Public Use
  Company Number: GB-MYLANLABS-2015M1039986

PATIENT

DRUGS (4)
  1. OXALIPLATIN. [Suspect]
     Active Substance: OXALIPLATIN
     Indication: COLON CANCER
     Dosage: UNK (COURSE OF 8 3 WEEKLY INFUSIONS (INCLUDING TWO WEEKS OF PILLS EACH SESSION))
     Route: 051
     Dates: start: 201403, end: 20140912
  2. CITALOPRAM [Concomitant]
     Active Substance: CITALOPRAM HYDROBROMIDE
     Dosage: UNK
  3. LEVOTHYROXINE SODIUM. [Concomitant]
     Active Substance: LEVOTHYROXINE SODIUM
     Dosage: UNK
  4. OXALIPLATIN. [Suspect]
     Active Substance: OXALIPLATIN
     Indication: COLON CANCER
     Dosage: UNK (TWO WEEKS OF PILLS EACH SESSION.)
     Dates: start: 201403, end: 20140912

REACTIONS (6)
  - Skin tightness [Unknown]
  - Pain [Unknown]
  - Chills [Not Recovered/Not Resolved]
  - Tremor [Unknown]
  - Hypoaesthesia [Unknown]
  - Paraesthesia [Not Recovered/Not Resolved]

NARRATIVE: CASE EVENT DATE: 201409
